FAERS Safety Report 10225831 (Version 1)
Quarter: 2014Q2

REPORT INFORMATION
  Report Type: Spontaneous
  Country: US (occurrence: US)
  Receive Date: 20140609
  Receipt Date: 20140609
  Transmission Date: 20141212
  Serious: Yes (Other)
  Sender: FDA-Public Use
  Company Number: US-ASTELLAS-2013US008859

PATIENT
  Sex: Female
  Weight: 58 kg

DRUGS (1)
  1. PROGRAF [Suspect]
     Indication: RENAL TRANSPLANT
     Dosage: 9 MG, (5 MG IN MORNING AND 4 MG IN EVENING)
     Route: 048

REACTIONS (1)
  - Transplant failure [Unknown]
